FAERS Safety Report 5908981-1 (Version None)
Quarter: 2008Q4

REPORT INFORMATION
  Report Type: 
  Country: None (occurrence: None)
  Receive Date: 20081001
  Receipt Date: 20080926
  Transmission Date: 20090506
  Serious: Yes (Life-Threatening, Hospitalization)
  Sender: FDA-Public Use
  Company Number: 2008-03594

PATIENT
  Age: 54 Year
  Sex: Female
  Weight: 67 kg

DRUGS (7)
  1. VELCADE [Suspect]
     Indication: MULTIPLE MYELOMA
     Dosage: 2.2 MG, INTRAVENOUS
     Route: 042
     Dates: start: 20080408, end: 20080411
  2. DOXORUBICIN HCL [Suspect]
     Indication: MULTIPLE MYELOMA
     Dosage: 16 MG, INTRAVENOUS
     Route: 042
     Dates: start: 20080408, end: 20080411
  3. DEXAMETHASONE [Suspect]
     Indication: MULTIPLE MYELOMA
     Dosage: 40 MG, ORAL
     Route: 048
     Dates: start: 20080408, end: 20080411
  4. ACYCLOVIR [Suspect]
     Indication: PROPHYLAXIS
     Dosage: 400 MG, ORAL
     Route: 048
     Dates: start: 20080408, end: 20080411
  5. SULFAMETHOXAZOLE AND TRIMETHOPRIM [Suspect]
     Indication: PROPHYLAXIS
     Dosage: 960 MG,ORAL
     Route: 048
     Dates: start: 20080408, end: 20080411
  6. FLUCONAZOLE [Suspect]
     Indication: PROPHYLAXIS
     Dosage: 200 MG,ORAL
     Route: 048
     Dates: start: 20080408, end: 20080411
  7. PAMIDRONATE DISODIUM [Suspect]
     Indication: PROPHYLAXIS
     Dosage: 90 MG, INTRAVENOUS
     Route: 042
     Dates: start: 20080408, end: 20080411

REACTIONS (1)
  - PULMONARY EMBOLISM [None]
